FAERS Safety Report 5363208-7 (Version None)
Quarter: 2007Q2

REPORT INFORMATION
  Report Type: 
  Country: None (occurrence: None)
  Receive Date: 20070620
  Receipt Date: 20070613
  Transmission Date: 20071010
  Serious: Yes (Other)
  Sender: FDA-Public Use
  Company Number: PHBS2006ES18248

PATIENT
  Age: 70 Year
  Sex: Female

DRUGS (5)
  1. ZOMETA [Suspect]
     Indication: METASTASES TO BONE
     Dosage: 4 MG, QMO
     Route: 042
     Dates: start: 20030820, end: 20060111
  2. ARIMIDEX [Concomitant]
     Indication: BREAST CANCER
     Dosage: 1 MG, UNK
     Dates: start: 20030806, end: 20060701
  3. IDAPTAN [Concomitant]
     Indication: CARDIAC DISORDER
     Dosage: 20 MG, UNK
     Dates: start: 20020101
  4. ANTALGIN [Concomitant]
     Indication: PAIN
     Dosage: 550 MG, UNK
     Dates: start: 20020101
  5. MYORELAX [Concomitant]
     Indication: PAIN
     Dosage: 350 MG, UNK
     Dates: start: 20020101

REACTIONS (3)
  - JAW DISORDER [None]
  - OSTEONECROSIS [None]
  - TOOTH EXTRACTION [None]
